FAERS Safety Report 25170367 (Version 1)
Quarter: 2025Q2

REPORT INFORMATION
  Report Type: Spontaneous
  Country: CN (occurrence: CN)
  Receive Date: 20250408
  Receipt Date: 20250408
  Transmission Date: 20250716
  Serious: Yes (Hospitalization, Other)
  Sender: BAXTER
  Company Number: None

PATIENT
  Age: 8 Year
  Sex: Male

DRUGS (6)
  1. IFOSFAMIDE [Suspect]
     Active Substance: IFOSFAMIDE
     Indication: Pineal germinoma
     Route: 041
     Dates: start: 20250306, end: 20250308
  2. MESNA [Suspect]
     Active Substance: MESNA
     Indication: Pineal germinoma
     Route: 065
  3. SODIUM CHLORIDE [Suspect]
     Active Substance: SODIUM CHLORIDE
     Indication: Medication dilution
     Route: 041
     Dates: start: 20250305, end: 20250307
  4. ETOPOSIDE [Suspect]
     Active Substance: ETOPOSIDE
     Indication: Pineal germinoma
     Route: 041
     Dates: start: 20250305, end: 20250307
  5. CARBOPLATIN [Suspect]
     Active Substance: CARBOPLATIN
     Indication: Pineal germinoma
     Route: 041
     Dates: start: 20250305, end: 20250306
  6. OPRELVEKIN [Suspect]
     Active Substance: OPRELVEKIN
     Route: 065

REACTIONS (4)
  - Myelosuppression [Recovering/Resolving]
  - White blood cell count decreased [Recovering/Resolving]
  - Neutrophil count decreased [Recovering/Resolving]
  - Platelet count decreased [Recovering/Resolving]

NARRATIVE: CASE EVENT DATE: 20250318
